FAERS Safety Report 9907147 (Version 1)
Quarter: 2014Q1

REPORT INFORMATION
  Report Type: Spontaneous
  Country: US (occurrence: US)
  Receive Date: 20140218
  Receipt Date: 20140218
  Transmission Date: 20141002
  Serious: Yes (Other)
  Sender: FDA-Public Use
  Company Number: US-MPIJNJ-2014MPI000496

PATIENT
  Sex: Male

DRUGS (2)
  1. VELCADE [Suspect]
     Indication: ADENOCARCINOMA
     Dosage: UNK FOR 18 WEEKS
     Route: 042
  2. DOXORUBICIN [Suspect]
     Indication: ADENOCARCINOMA
     Dosage: UNK FOR 3 WEEKS
     Route: 042

REACTIONS (2)
  - Nasopharyngeal cancer [Unknown]
  - Off label use [Unknown]
